FAERS Safety Report 23598758 (Version 1)
Quarter: 2024Q1

REPORT INFORMATION
  Report Type: Spontaneous
  Country: JP (occurrence: JP)
  Receive Date: 20240306
  Receipt Date: 20240306
  Transmission Date: 20240410
  Serious: Yes (Other)
  Sender: FDA-Public Use
  Company Number: JP-MSD-2311JPN002285J

PATIENT
  Age: 79 Year
  Sex: Female
  Weight: 42 kg

DRUGS (3)
  1. KEYTRUDA [Suspect]
     Active Substance: PEMBROLIZUMAB
     Indication: Uterine cancer
     Dosage: 200 MILLIGRAM, Q3W
     Route: 041
     Dates: start: 202310, end: 2023
  2. LENVATINIB MESYLATE [Suspect]
     Active Substance: LENVATINIB MESYLATE
     Indication: Uterine cancer
     Dosage: 14 MILLIGRAM, QD
     Route: 048
     Dates: start: 202310, end: 202310
  3. LENVATINIB MESYLATE [Suspect]
     Active Substance: LENVATINIB MESYLATE
     Dosage: 10 MILLIGRAM, QD
     Route: 048
     Dates: start: 20231110, end: 202312

REACTIONS (6)
  - Inappropriate antidiuretic hormone secretion [Unknown]
  - Cortisol decreased [Recovered/Resolved]
  - Hypertension [Recovered/Resolved]
  - Malaise [Recovered/Resolved]
  - Malaise [Unknown]
  - Hyponatraemia [Unknown]

NARRATIVE: CASE EVENT DATE: 20231001
